FAERS Safety Report 15929146 (Version 2)
Quarter: 2019Q1

REPORT INFORMATION
  Report Type: Spontaneous
  Country: IN (occurrence: IN)
  Receive Date: 20190206
  Receipt Date: 20190218
  Transmission Date: 20190417
  Serious: Yes (Other)
  Sender: FDA-Public Use
  Company Number: IN-ELI_LILLY_AND_COMPANY-IN201901014714

PATIENT
  Age: 52 Year
  Sex: Female

DRUGS (3)
  1. DULAGLUTIDE. [Suspect]
     Active Substance: DULAGLUTIDE
     Indication: PRODUCT USED FOR UNKNOWN INDICATION
     Dosage: 0.75 MG, WEEKLY (1/W)
     Route: 065
  2. METFORMIN [Concomitant]
     Active Substance: METFORMIN HYDROCHLORIDE
     Indication: PRODUCT USED FOR UNKNOWN INDICATION
     Dosage: 1000 MG, BID
  3. DULAGLUTIDE. [Suspect]
     Active Substance: DULAGLUTIDE
     Dosage: 1.5 MG, WEEKLY (1/W)
     Route: 065

REACTIONS (9)
  - Cerebral infarction [Recovered/Resolved]
  - Transverse sinus thrombosis [Recovered/Resolved]
  - Dehydration [Unknown]
  - Nausea [Unknown]
  - Diabetes mellitus inadequate control [Recovered/Resolved]
  - Ischaemic stroke [Recovered/Resolved]
  - Papilloedema [Unknown]
  - Vomiting [Unknown]
  - Tachycardia [Unknown]
